FAERS Safety Report 6567972-0 (Version None)
Quarter: 2010Q1

REPORT INFORMATION
  Report Type: 
  Country: None (occurrence: None)
  Receive Date: 20100127
  Receipt Date: 20100115
  Transmission Date: 20100710
  Serious: Yes (Other)
  Sender: FDA-Public Use
  Company Number: CIP10000105

PATIENT
  Age: 51 Year
  Sex: Female

DRUGS (2)
  1. ACTONEL [Suspect]
     Dosage: 150 MG ONCE MONTHLY, ORAL
     Route: 048
     Dates: start: 20080401, end: 20090301
  2. VITAMINS NOS (VITAMINS NOS) [Concomitant]

REACTIONS (13)
  - ARTHRALGIA [None]
  - BURSITIS [None]
  - CHRONIC LYMPHOCYTIC LEUKAEMIA [None]
  - COGNITIVE DISORDER [None]
  - DYSSTASIA [None]
  - GAIT DISTURBANCE [None]
  - MUSCULAR WEAKNESS [None]
  - MYALGIA [None]
  - PAIN IN EXTREMITY [None]
  - PAIN IN JAW [None]
  - PALPITATIONS [None]
  - RASH PAPULAR [None]
  - TOOTHACHE [None]
